FAERS Safety Report 8795959 (Version 4)
Quarter: 2012Q4

REPORT INFORMATION
  Report Type: 
  Country: AU (occurrence: AU)
  Receive Date: 20120920
  Receipt Date: 20121002
  Transmission Date: 20130627
  Serious: Yes (Hospitalization, Other)
  Sender: FDA-Public Use
  Company Number: AU-VERTEX PHARMACEUTICAL INC.-2012-020986

PATIENT
  Sex: Female
  Weight: 75 kg

DRUGS (4)
  1. INCIVO [Suspect]
     Indication: HEPATITIS C
     Dosage: Dosage Form: Tablet
     Route: 048
     Dates: start: 20120810
  2. INCIVO [Suspect]
     Dosage: Dosage Form: Tablet
     Route: 048
  3. RIBAVIRIN [Concomitant]
     Indication: HEPATITIS C
     Dosage: Dosage Form: Unspecified
     Route: 065
     Dates: start: 20120810
  4. PEGASYS [Concomitant]
     Indication: HEPATITIS C
     Dosage: Dosage Form: Unspecified
     Route: 065
     Dates: start: 20120810

REACTIONS (6)
  - Anorectal disorder [Unknown]
  - Proctalgia [Not Recovered/Not Resolved]
  - Anal fissure [Unknown]
  - Constipation [Unknown]
  - Haemorrhage [Unknown]
  - Skin irritation [Unknown]
